FAERS Safety Report 8068192-3 (Version None)
Quarter: 2012Q1

REPORT INFORMATION
  Report Type: 
  Country: None (occurrence: None)
  Receive Date: 20120124
  Receipt Date: 20110930
  Transmission Date: 20120608
  Serious: No
  Sender: FDA-Public Use
  Company Number: US-AMGEN-USASP2011032317

PATIENT
  Age: 70 Year
  Sex: Male

DRUGS (1)
  1. XGEVA [Suspect]
     Indication: PROSTATIC DISORDER
     Dosage: UNK

REACTIONS (2)
  - MUSCLE SPASMS [None]
  - ACUTE PHASE REACTION [None]
